FAERS Safety Report 5956524-9 (Version None)
Quarter: 2008Q4

REPORT INFORMATION
  Report Type: 
  Country: None (occurrence: None)
  Receive Date: 20081118
  Receipt Date: 20081015
  Transmission Date: 20090506
  Serious: Yes (Other)
  Sender: FDA-Public Use
  Company Number: B0544946A

PATIENT
  Age: 68 Year
  Sex: Male

DRUGS (4)
  1. ARIXTRA [Suspect]
     Indication: DENTAL DISORDER PROPHYLAXIS
     Route: 058
     Dates: start: 20080606, end: 20080616
  2. DETENSIEL [Concomitant]
     Indication: HYPERTENSION
     Route: 065
  3. TRIATEC [Concomitant]
     Indication: HYPERTENSION
     Route: 065
  4. PREVISCAN [Concomitant]
     Indication: DENTAL DISORDER PROPHYLAXIS
     Route: 065

REACTIONS (3)
  - ABDOMINAL PAIN [None]
  - HEPATITIS [None]
  - PYREXIA [None]
